FAERS Safety Report 23859774 (Version 2)
Quarter: 2024Q2

REPORT INFORMATION
  Report Type: Spontaneous
  Country: US (occurrence: US)
  Receive Date: 20240515
  Receipt Date: 20240611
  Transmission Date: 20240716
  Serious: Yes (Death, Hospitalization, Other)
  Sender: FDA-Public Use
  Company Number: US-009507513-2405USA002894

PATIENT
  Sex: Female

DRUGS (2)
  1. KEYTRUDA [Suspect]
     Active Substance: PEMBROLIZUMAB
     Indication: Neoplasm malignant
     Dosage: UNK
     Dates: start: 20220104, end: 202208
  2. KEYTRUDA [Suspect]
     Active Substance: PEMBROLIZUMAB
     Indication: Transitional cell carcinoma
     Dosage: UNK
     Dates: start: 20221005, end: 20221005

REACTIONS (12)
  - Syncope [Unknown]
  - Sjogren^s syndrome [Fatal]
  - COVID-19 [Unknown]
  - Blood pressure abnormal [Unknown]
  - Dysstasia [Unknown]
  - Decreased appetite [Unknown]
  - General physical health deterioration [Unknown]
  - Tinnitus [Unknown]
  - Ear pain [Unknown]
  - Hospice care [Unknown]
  - Dysphagia [Unknown]
  - Feeding disorder [Unknown]

NARRATIVE: CASE EVENT DATE: 20220101
